FAERS Safety Report 6403775-5 (Version None)
Quarter: 2009Q4

REPORT INFORMATION
  Report Type: 
  Country: None (occurrence: None)
  Receive Date: 20091013
  Receipt Date: 20090929
  Transmission Date: 20100525
  Serious: Yes (Other)
  Sender: FDA-Public Use
  Company Number: ENT 2009-0174

PATIENT
  Age: 57 Year
  Sex: Male

DRUGS (8)
  1. ENTACAPONE (ENTACAPONE) [Suspect]
  2. LEVODOPA [Suspect]
  3. BENSERAZIDE [Suspect]
  4. CARBIDOPA [Suspect]
  5. BROMOCRIPTINE [Suspect]
  6. TOLCAPONE [Suspect]
  7. PERGOLIDE [Suspect]
  8. PIRIBEDIL [Suspect]

REACTIONS (3)
  - DOPAMINE DYSREGULATION SYNDROME [None]
  - DRUG ABUSE [None]
  - PATHOLOGICAL GAMBLING [None]
